FAERS Safety Report 8554057 (Version 3)
Quarter: 2012Q4

REPORT INFORMATION
  Report Type: 
  Country: JP (occurrence: JP)
  Receive Date: 20120509
  Receipt Date: 20120912
  Transmission Date: 20130627
  Serious: Yes (Hospitalization)
  Sender: FDA-Public Use
  Company Number: JP-ELI_LILLY_AND_COMPANY-JP201204008837

PATIENT
  Age: 65 Year
  Sex: Female
  Weight: 40 kg

DRUGS (40)
  1. ZYPREXA [Suspect]
     Indication: DELUSION
     Dosage: 10 mg, qd
     Dates: start: 20101115, end: 20101125
  2. ZYPREXA [Suspect]
     Dosage: 15 mg, qd
     Dates: start: 20101126, end: 20101202
  3. ZYPREXA [Suspect]
     Dosage: 20 mg, qd
     Dates: start: 20101203, end: 20110224
  4. ZYPREXA [Suspect]
     Dosage: 17.5 mg, qd
     Dates: start: 20110225, end: 20110602
  5. ZYPREXA [Suspect]
     Dosage: 15 mg, qd
     Dates: start: 20110603, end: 20110623
  6. ZYPREXA [Suspect]
     Dosage: 10 mg, qd
     Dates: start: 20110624, end: 20110626
  7. ZYPREXA [Suspect]
     Dosage: 5 mg, qd
     Dates: start: 20110627, end: 20110629
  8. ZYPREXA [Suspect]
     Dosage: 2.5 mg, qd
     Dates: start: 20110630, end: 20110702
  9. CYMBALTA [Concomitant]
     Indication: DEPRESSION
     Dosage: 20 mg, qd
     Route: 048
     Dates: start: 20101015, end: 20101021
  10. CYMBALTA [Concomitant]
     Dosage: 30 mg, qd
     Route: 048
     Dates: start: 20101022, end: 20111028
  11. CYMBALTA [Concomitant]
     Dosage: 40 mg, qd
     Route: 048
     Dates: start: 20101029, end: 20101111
  12. CYMBALTA [Concomitant]
     Dosage: 60 mg, qd
     Route: 048
     Dates: start: 20101112, end: 20110217
  13. CYMBALTA [Concomitant]
     Dosage: 40 mg, qd
     Route: 048
     Dates: start: 20110218, end: 20110310
  14. CYMBALTA [Concomitant]
     Dosage: 30 mg, qd
     Route: 048
     Dates: start: 20110311, end: 20110407
  15. CYMBALTA [Concomitant]
     Dosage: 40 mg, qd
     Route: 048
     Dates: start: 20110408, end: 20110418
  16. CYMBALTA [Concomitant]
     Dosage: 60 mg, qd
     Route: 048
     Dates: start: 20110419, end: 20110623
  17. CYMBALTA [Concomitant]
     Dosage: 40 mg, qd
     Route: 048
     Dates: start: 20110624, end: 20110626
  18. CYMBALTA [Concomitant]
     Dosage: 30 mg, qd
     Route: 048
     Dates: start: 20110627, end: 20110704
  19. CYMBALTA [Concomitant]
     Dosage: 20 mg, qd
     Route: 048
     Dates: start: 20110705, end: 20110708
  20. JZOLOFT [Concomitant]
     Dosage: 100 mg, qd
     Dates: end: 20101028
  21. JZOLOFT [Concomitant]
     Dosage: 75 mg, qd
     Dates: start: 20101029, end: 20101104
  22. JZOLOFT [Concomitant]
     Dosage: 50 mg, qd
     Dates: start: 20101105, end: 20101112
  23. JZOLOFT [Concomitant]
     Dosage: 25 mg, qd
     Dates: start: 20101113, end: 20101119
  24. NORITREN [Concomitant]
     Dosage: 25 mg, qd
     Dates: start: 20101105, end: 20101118
  25. NORITREN [Concomitant]
     Dosage: 50 mg, qd
     Dates: start: 20101119, end: 20101125
  26. NORITREN [Concomitant]
     Dosage: 75 mg, qd
     Dates: start: 20101126, end: 20101202
  27. NORITREN [Concomitant]
     Dosage: 100 mg, qd
     Dates: start: 20101203, end: 20101223
  28. NORITREN [Concomitant]
     Dosage: 75 mg, qd
     Dates: start: 20101224, end: 20110127
  29. NORITREN [Concomitant]
     Dosage: 50 mg, qd
     Dates: start: 20110128, end: 20110203
  30. NORITREN [Concomitant]
     Dosage: 25 mg, qd
     Dates: start: 20110204, end: 20110310
  31. NORITREN [Concomitant]
     Dosage: 12.5 mg, qd
     Dates: start: 20110311, end: 20110525
  32. NORITREN [Concomitant]
     Dosage: 25 mg, qd
     Dates: start: 20110527, end: 20110529
  33. NORITREN [Concomitant]
     Dosage: 50 mg, qd
     Dates: start: 20110530, end: 20110601
  34. NORITREN [Concomitant]
     Dosage: 62.5 mg, qd
     Dates: start: 20110602, end: 20110609
  35. NORITREN [Concomitant]
     Dosage: 50 mg, qd
     Dates: start: 20110610
  36. WYPAX [Concomitant]
     Dosage: 1.5 mg, UNK
     Dates: end: 20101223
  37. WYPAX [Concomitant]
     Dosage: 1 mg, qd
     Dates: start: 20101224, end: 20110128
  38. WYPAX [Concomitant]
     Dosage: 2 mg, qd
     Dates: start: 20110610
  39. NITRAZEPAM [Concomitant]
     Dosage: 5 mg, qd
     Dates: start: 20110603
  40. SEROQUEL [Concomitant]
     Indication: SLEEP DISORDER
     Dosage: 25 mg, qd
     Dates: end: 20101126

REACTIONS (7)
  - Bipolar I disorder [Not Recovered/Not Resolved]
  - Subileus [Recovered/Resolved]
  - Hallucination [Recovered/Resolved]
  - Psychotic disorder [Recovered/Resolved]
  - Alanine aminotransferase increased [Recovered/Resolved]
  - Alanine aminotransferase increased [Recovered/Resolved]
  - Off label use [Unknown]
